FAERS Safety Report 8540192-6 (Version None)
Quarter: 2012Q3

REPORT INFORMATION
  Report Type: 
  Country: None (occurrence: None)
  Receive Date: 20120726
  Receipt Date: 20120717
  Transmission Date: 20120928
  Serious: Yes (Other)
  Sender: FDA-Public Use
  Company Number: US-ASTRAZENECA-2012SE50298

PATIENT
  Age: 54 Year
  Sex: Female

DRUGS (8)
  1. ASPIRIN [Concomitant]
  2. BENICAR [Concomitant]
  3. LANTUS [Concomitant]
  4. NOVOLOG [Concomitant]
  5. COREG [Concomitant]
  6. PROCARDIA XL [Concomitant]
  7. LISINOPRIL [Suspect]
     Route: 048
  8. ZOCOR [Concomitant]

REACTIONS (2)
  - CEREBROVASCULAR ACCIDENT [None]
  - COUGH [None]
